FAERS Safety Report 15750458 (Version 1)
Quarter: 2018Q4

REPORT INFORMATION
  Report Type: Spontaneous
  Country: CA (occurrence: CA)
  Receive Date: 20181221
  Receipt Date: 20181221
  Transmission Date: 20190205
  Serious: Yes (Disabling, Other)
  Sender: FDA-Public Use
  Company Number: CA-BAYER-2018-240049

PATIENT
  Age: 29 Year
  Sex: Female
  Weight: 46 kg

DRUGS (4)
  1. MIRENA [Suspect]
     Active Substance: LEVONORGESTREL
     Indication: CONTRACEPTION
     Dosage: 20 MCG/24HR, CONT
  2. ADALIMUMAB [Concomitant]
     Active Substance: ADALIMUMAB
  3. MIRENA [Suspect]
     Active Substance: LEVONORGESTREL
     Indication: CONTRACEPTION
  4. INFLECTRA [Concomitant]
     Active Substance: INFLIXIMAB-DYYB

REACTIONS (12)
  - Irritability [None]
  - Neck pain [None]
  - Negative thoughts [None]
  - Anxiety [None]
  - Amnesia [None]
  - Back pain [None]
  - Gastrointestinal disorder [None]
  - Fatigue [None]
  - Night sweats [None]
  - Disturbance in attention [None]
  - Dizziness [None]
  - Loss of libido [None]
